FAERS Safety Report 7297353-6 (Version None)
Quarter: 2011Q1

REPORT INFORMATION
  Report Type: 
  Country: None (occurrence: None)
  Receive Date: 20110216
  Receipt Date: 20110214
  Transmission Date: 20110831
  Serious: Yes (Hospitalization)
  Sender: FDA-Public Use
  Company Number: US-B.I. PHARMACEUTICALS,INC./RIDGEFIELD-2011-BP-02808BP

PATIENT
  Age: 72 Year
  Sex: Female

DRUGS (7)
  1. PRADAXA [Suspect]
     Indication: ATRIAL FIBRILLATION
     Dosage: 300 MG
     Route: 048
     Dates: start: 20110114, end: 20110114
  2. RYTHMOL SR [Concomitant]
     Dates: start: 20070101
  3. CARTIA LONG ACTING [Concomitant]
     Dates: start: 20070101
  4. LISINOPRIL [Concomitant]
     Dates: start: 19930101
  5. PRADAXA [Suspect]
     Indication: CEREBROVASCULAR ACCIDENT PROPHYLAXIS
  6. ASPIRIN [Concomitant]
  7. INSULIN PUMP NOVOLIN [Concomitant]
     Dates: start: 20090101

REACTIONS (5)
  - ABDOMINAL PAIN UPPER [None]
  - TACHYCARDIA [None]
  - NAUSEA [None]
  - VOMITING PROJECTILE [None]
  - DYSPEPSIA [None]
